FAERS Safety Report 9310382 (Version 1)
Quarter: 2013Q2

REPORT INFORMATION
  Report Type: Spontaneous
  Country: GB (occurrence: GB)
  Receive Date: 20130527
  Receipt Date: 20130527
  Transmission Date: 20140414
  Serious: Yes (Other)
  Sender: FDA-Public Use
  Company Number: GB-BRISTOL-MYERS SQUIBB COMPANY-18923359

PATIENT
  Age: 46 Year
  Sex: Male

DRUGS (2)
  1. ABILIFY TABS 5 MG [Suspect]
     Indication: SCHIZOPHRENIA, PARANOID TYPE
  2. CLOZAPINE [Concomitant]

REACTIONS (1)
  - Delusion [Not Recovered/Not Resolved]
